FAERS Safety Report 13760979 (Version 3)
Quarter: 2017Q3

REPORT INFORMATION
  Report Type: Spontaneous
  Country: JP (occurrence: JP)
  Receive Date: 20170717
  Receipt Date: 20170817
  Transmission Date: 20171127
  Serious: Yes (Hospitalization)
  Sender: FDA-Public Use
  Company Number: JP-NOVOPROD-552351

PATIENT
  Age: 78 Year
  Sex: Male
  Weight: 51 kg

DRUGS (9)
  1. NOVORAPID [Suspect]
     Active Substance: INSULIN ASPART
     Dosage: 13 IU, QD (9IU IN THE MORNING AND 4IU IN THE EVENING)
     Route: 058
     Dates: start: 20160701
  2. NOVORAPID [Suspect]
     Active Substance: INSULIN ASPART
     Dosage: 18 U, QD (12IU IN THE MORNING AND 6IU IN THE EVENING)
     Route: 058
     Dates: start: 20160727
  3. GLUFAST [Concomitant]
     Active Substance: MITIGLINIDE
     Indication: TYPE 2 DIABETES MELLITUS
     Dosage: UNK
     Route: 065
     Dates: start: 20161026, end: 20161114
  4. NOVORAPID [Suspect]
     Active Substance: INSULIN ASPART
     Indication: TYPE 2 DIABETES MELLITUS
     Dosage: 11 U, QD (7IU IN THE MORNING AND 4IU IN THE EVENING)
     Route: 058
     Dates: start: 201401
  5. REBAMIPIDE [Concomitant]
     Active Substance: REBAMIPIDE
     Indication: DUODENAL ULCER
     Dosage: 300 MG, QD
     Route: 048
     Dates: start: 201401
  6. VICTOZA [Concomitant]
     Active Substance: LIRAGLUTIDE
     Indication: TYPE 2 DIABETES MELLITUS
     Dosage: UNK
     Route: 065
     Dates: start: 20161024, end: 20170412
  7. OLMETEC [Concomitant]
     Active Substance: OLMESARTAN MEDOXOMIL
     Indication: HYPERTENSION
     Dosage: 20 MG, QD
     Route: 048
  8. BAYASPIRIN [Concomitant]
     Active Substance: ASPIRIN
     Indication: CEREBRAL INFARCTION
     Dosage: 100 MG, QD
     Route: 048
     Dates: start: 201401
  9. CILNIDIPINE [Concomitant]
     Active Substance: CILNIDIPINE
     Indication: HYPERTENSION
     Dosage: 10 MG, QD
     Route: 048
     Dates: start: 201401

REACTIONS (4)
  - Diabetes mellitus inadequate control [Recovering/Resolving]
  - Anti-insulin antibody increased [Recovering/Resolving]
  - Encephalopathy [Recovered/Resolved]
  - Hyperglycaemia [Recovered/Resolved]

NARRATIVE: CASE EVENT DATE: 20160701
